FAERS Safety Report 10609486 (Version 3)
Quarter: 2014Q4

REPORT INFORMATION
  Report Type: Spontaneous
  Country: CA (occurrence: CA)
  Receive Date: 20141126
  Receipt Date: 20141211
  Transmission Date: 20150529
  Serious: Yes (Other)
  Sender: FDA-Public Use
  Company Number: CA-BEH-2014046590

PATIENT
  Age: 56 Year
  Sex: Male
  Weight: 109.8 kg

DRUGS (14)
  1. PRIVIGEN [Suspect]
     Active Substance: HUMAN IMMUNOGLOBULIN G
     Dosage: 2 X 40 G
     Route: 042
     Dates: start: 20140428, end: 20140428
  2. ASA [Concomitant]
     Active Substance: ASPIRIN
  3. PRIVIGEN [Suspect]
     Active Substance: HUMAN IMMUNOGLOBULIN G
     Indication: SEPTIC SHOCK
     Route: 042
     Dates: start: 20140430, end: 20140430
  4. PREVACID [Concomitant]
     Active Substance: LANSOPRAZOLE
  5. PRIVIGEN [Suspect]
     Active Substance: HUMAN IMMUNOGLOBULIN G
     Route: 042
     Dates: start: 20140428, end: 20140428
  6. PRIVIGEN [Suspect]
     Active Substance: HUMAN IMMUNOGLOBULIN G
     Route: 042
     Dates: start: 20140429, end: 20140429
  7. PRIVIGEN [Suspect]
     Active Substance: HUMAN IMMUNOGLOBULIN G
     Indication: TOXIC SHOCK SYNDROME STREPTOCOCCAL
     Route: 042
     Dates: start: 20140430, end: 20140430
  8. VANCOCIN [Suspect]
     Active Substance: VANCOMYCIN HYDROCHLORIDE
     Route: 042
  9. CLINDAMYCIN [Concomitant]
     Active Substance: CLINDAMYCIN\CLINDAMYCIN PHOSPHATE
     Route: 042
  10. PRIVIGEN [Suspect]
     Active Substance: HUMAN IMMUNOGLOBULIN G
     Route: 042
     Dates: start: 20140429, end: 20140429
  11. TAZOCIN [Concomitant]
     Active Substance: PIPERACILLIN SODIUM\TAZOBACTAM SODIUM
     Route: 042
  12. LASIX [Suspect]
     Active Substance: FUROSEMIDE
     Route: 042
     Dates: start: 20140430
  13. DIPRIVAN [Concomitant]
     Active Substance: PROPOFOL
     Route: 042
  14. FENTANYL. [Concomitant]
     Active Substance: FENTANYL

REACTIONS (6)
  - Acute kidney injury [Recovered/Resolved]
  - Intravascular haemolysis [Recovered/Resolved]
  - Delayed serologic transfusion reaction [Recovered/Resolved]
  - Delayed haemolytic transfusion reaction [Recovered/Resolved]
  - Antibody test abnormal [Recovered/Resolved]
  - Anti A antibody [Recovered/Resolved]

NARRATIVE: CASE EVENT DATE: 20140429
